FAERS Safety Report 16783431 (Version 1)
Quarter: 2019Q3

REPORT INFORMATION
  Report Type: Spontaneous
  Country: US (occurrence: US)
  Receive Date: 20190907
  Receipt Date: 20190907
  Transmission Date: 20191005
  Serious: No
  Sender: FDA-Public Use
  Company Number: US-CELGENEUS-USA-20190900209

PATIENT
  Age: 43 Year
  Sex: Female

DRUGS (2)
  1. OTEZLA [Suspect]
     Active Substance: APREMILAST
     Indication: PSORIASIS
     Dosage: STARTER PACK
     Route: 048
     Dates: start: 20190611, end: 201907
  2. OTEZLA [Suspect]
     Active Substance: APREMILAST
     Indication: PSORIATIC ARTHROPATHY
     Dosage: 60 MILLIGRAM
     Route: 048
     Dates: start: 20190614, end: 201908

REACTIONS (6)
  - Irritability [Not Recovered/Not Resolved]
  - Musculoskeletal pain [Not Recovered/Not Resolved]
  - Mood altered [Not Recovered/Not Resolved]
  - Psoriasis [Not Recovered/Not Resolved]
  - Agitation [Not Recovered/Not Resolved]
  - Anger [Not Recovered/Not Resolved]

NARRATIVE: CASE EVENT DATE: 201907
